FAERS Safety Report 6166323-3 (Version None)
Quarter: 2009Q2

REPORT INFORMATION
  Report Type: 
  Country: None (occurrence: None)
  Receive Date: 20090424
  Receipt Date: 20090420
  Transmission Date: 20091009
  Serious: Yes (Hospitalization, Other)
  Sender: FDA-Public Use
  Company Number: US-BAYER-200841545NA

PATIENT
  Age: 48 Year
  Sex: Female
  Weight: 64 kg

DRUGS (1)
  1. YAZ [Suspect]
     Indication: ORAL CONTRACEPTION
     Route: 048

REACTIONS (5)
  - DEEP VEIN THROMBOSIS [None]
  - ERYTHEMA [None]
  - HAEMATOMA [None]
  - OEDEMA PERIPHERAL [None]
  - PULMONARY EMBOLISM [None]
